FAERS Safety Report 17157323 (Version 1)
Quarter: 2019Q4

REPORT INFORMATION
  Report Type: Spontaneous
  Country: US (occurrence: US)
  Receive Date: 20191216
  Receipt Date: 20191216
  Transmission Date: 20200122
  Serious: No
  Sender: FDA-Public Use
  Company Number: US-AUROBINDO-AUR-APL-2019-041570

PATIENT
  Age: 32 Year
  Sex: Female

DRUGS (1)
  1. MIRTAZAPINE TABLETS 45 MG [Suspect]
     Active Substance: MIRTAZAPINE
     Indication: PRODUCT USED FOR UNKNOWN INDICATION
     Dosage: UNK
     Route: 065
     Dates: start: 20190627

REACTIONS (5)
  - Feeling abnormal [Recovered/Resolved]
  - Visual impairment [Recovered/Resolved]
  - Parosmia [Recovered/Resolved]
  - Nausea [Recovered/Resolved]
  - Hyperacusis [Recovered/Resolved]
